FAERS Safety Report 16482766 (Version 5)
Quarter: 2019Q3

REPORT INFORMATION
  Report Type: Report from Study
  Country: TW (occurrence: TW)
  Receive Date: 20190627
  Receipt Date: 20190805
  Transmission Date: 20191004
  Serious: Yes (Hospitalization)
  Sender: FDA-Public Use
  Company Number: TW-ROCHE-2343124

PATIENT
  Age: 49 Year
  Sex: Female
  Weight: 50.9 kg

DRUGS (9)
  1. TRASTUZUMAB. [Suspect]
     Active Substance: TRASTUZUMAB
     Dosage: MAINTENANCE DOSE
     Route: 041
  2. DOCETAXEL. [Suspect]
     Active Substance: DOCETAXEL
     Indication: HER-2 POSITIVE BREAST CANCER
     Dosage: ON DAY 1 OF CYCLE 5.?ON 21/MAY/2019, RECEIVED MOST RECENT DOSE OF DOCETAXEL 112.5 MG AT 12:58.
     Route: 042
     Dates: start: 20190312
  3. NASONEX [Concomitant]
     Active Substance: MOMETASONE FUROATE
     Indication: RHINITIS ALLERGIC
     Route: 065
     Dates: start: 20190620
  4. PERTUZUMAB. [Suspect]
     Active Substance: PERTUZUMAB
     Dosage: MAINTENANCE DOSE
     Route: 042
  5. CYCLOPHOSPHAMIDE. [Suspect]
     Active Substance: CYCLOPHOSPHAMIDE
     Indication: HER-2 POSITIVE BREAST CANCER
     Dosage: ON DAY 1 OF EACH CYCLE OF TREATMENT FOR CYCLES 1-4.?THE MOST RECENT DOSE (846 MG) PRIOR TO SAE ONSET
     Route: 042
     Dates: start: 20181205
  6. TRASTUZUMAB. [Suspect]
     Active Substance: TRASTUZUMAB
     Indication: HER-2 POSITIVE BREAST CANCER
     Dosage: LOADING DOSE.?ON 21/APR/2019,RECEIVED MOST RECENT DOSE OF TRASTUZUMAB (312MG) PRIOR TO SAE ONSET AT
     Route: 041
     Dates: start: 20190312
  7. DOXORUBICIN [Suspect]
     Active Substance: DOXORUBICIN
     Indication: HER-2 POSITIVE BREAST CANCER
     Dosage: DAY 1 OF EACH CYCLE OF TREATMENT FOR CYCLES 1-4.?THE MOST RECENT DOSE (84.6 MG) PRIOR TO SAE ONSET A
     Route: 042
     Dates: start: 20181205
  8. PERTUZUMAB. [Suspect]
     Active Substance: PERTUZUMAB
     Indication: HER-2 POSITIVE BREAST CANCER
     Dosage: LOADING DOSE?ON 21/APR/2019, RECEIVED MOST RECENT DOSE OF PERTUZUMAB 420 MG AT 10:53.
     Route: 042
     Dates: start: 20190312
  9. XYZAL [Concomitant]
     Active Substance: LEVOCETIRIZINE DIHYDROCHLORIDE
     Indication: RHINITIS ALLERGIC
     Route: 048
     Dates: start: 20190620

REACTIONS (1)
  - Cellulitis [Recovered/Resolved]

NARRATIVE: CASE EVENT DATE: 20190620
